FAERS Safety Report 15003746 (Version 1)
Quarter: 2018Q2

REPORT INFORMATION
  Report Type: Spontaneous
  Country: US (occurrence: US)
  Receive Date: 20180613
  Receipt Date: 20180613
  Transmission Date: 20180711
  Serious: Yes (Hospitalization, Other)
  Sender: FDA-Public Use
  Company Number: US-AJANTA PHARMA USA INC.-2049310

PATIENT
  Age: 9 Year
  Sex: Male
  Weight: 36.36 kg

DRUGS (2)
  1. CONCERTA [Suspect]
     Active Substance: METHYLPHENIDATE HYDROCHLORIDE
     Dates: start: 201511
  2. RISPERIDONE. [Suspect]
     Active Substance: RISPERIDONE
     Indication: PSYCHOMOTOR HYPERACTIVITY
     Route: 048
     Dates: start: 2016

REACTIONS (11)
  - Drug withdrawal syndrome [Unknown]
  - Homicidal ideation [Not Recovered/Not Resolved]
  - Weight decreased [Unknown]
  - Aggression [Not Recovered/Not Resolved]
  - Loss of consciousness [Unknown]
  - Inappropriate schedule of drug administration [Not Recovered/Not Resolved]
  - Device use issue [Unknown]
  - Decreased appetite [Unknown]
  - Product storage error [Unknown]
  - Suicide threat [Not Recovered/Not Resolved]
  - Concussion [Unknown]

NARRATIVE: CASE EVENT DATE: 20180525
